FAERS Safety Report 5909867-9 (Version None)
Quarter: 2008Q4

REPORT INFORMATION
  Report Type: 
  Country: None (occurrence: None)
  Receive Date: 20081002
  Receipt Date: 20081002
  Transmission Date: 20090506
  Serious: Yes (Other)
  Sender: FDA-Public Use
  Company Number: None

PATIENT

DRUGS (1)
  1. CATAPRES-TTS-2 [Suspect]
     Dates: start: 20040126

REACTIONS (3)
  - DIZZINESS [None]
  - PALPITATIONS [None]
  - PRODUCT QUALITY ISSUE [None]
